FAERS Safety Report 5889129-9 (Version None)
Quarter: 2008Q3

REPORT INFORMATION
  Report Type: 
  Country: None (occurrence: None)
  Receive Date: 20080917
  Receipt Date: 20080910
  Transmission Date: 20090109
  Serious: Yes (Other)
  Sender: FDA-Public Use
  Company Number: 2008JP003994

PATIENT
  Age: 66 Year
  Sex: Female

DRUGS (4)
  1. FUNGUARD (MICAFUNGIN)INJECTION [Suspect]
     Indication: SEPSIS
     Dosage: 100 MG, IUD;QD, IV DRIP
     Route: 042
     Dates: start: 20070819, end: 20080827
  2. CEFTAZIDIME [Suspect]
     Indication: INFECTION
     Dosage: 1 G, UID/QD, IV NOS
     Route: 042
     Dates: start: 20080821, end: 20080825
  3. VANCOMYCIN [Concomitant]
  4. ALBUMIN (ALBUMIN) INJECTION [Concomitant]

REACTIONS (1)
  - LEUKOCYTOSIS [None]
